FAERS Safety Report 24058162 (Version 1)
Quarter: 2024Q3

REPORT INFORMATION
  Report Type: Report from Study
  Country: US (occurrence: US)
  Receive Date: 20240708
  Receipt Date: 20240708
  Transmission Date: 20241016
  Serious: Yes (Other)
  Sender: ABBVIE
  Company Number: US-ABBVIE-5828206

PATIENT
  Sex: Female

DRUGS (5)
  1. SKYRIZI [Suspect]
     Active Substance: RISANKIZUMAB-RZAA
     Indication: Crohn^s disease
     Dosage: FORM STRENGTH: 2.4 MILLILITRE, DRUG END DATE 2024
     Route: 058
     Dates: start: 202401
  2. SKYRIZI [Suspect]
     Active Substance: RISANKIZUMAB-RZAA
     Dosage: FORM STRENGTH: 2.4 MILLILITRE, WEEK 12
     Route: 058
     Dates: start: 20231019, end: 20231019
  3. SKYRIZI [Suspect]
     Active Substance: RISANKIZUMAB-RZAA
     Indication: Crohn^s disease
     Dosage: FORM STRENGTH: 600MG, WEEK 4
     Route: 042
     Dates: start: 20230824, end: 20230824
  4. SKYRIZI [Suspect]
     Active Substance: RISANKIZUMAB-RZAA
     Indication: Crohn^s disease
     Dosage: FORM STRENGTH: 600MG, WEEK 0
     Route: 042
     Dates: start: 20230727, end: 20230727
  5. SKYRIZI [Suspect]
     Active Substance: RISANKIZUMAB-RZAA
     Indication: Crohn^s disease
     Dosage: FORM STRENGTH: 600MG, WEEK 8
     Route: 042
     Dates: start: 20230921, end: 20230921

REACTIONS (6)
  - Ostomy bag placement [Unknown]
  - Haematochezia [Unknown]
  - Skin disorder [Unknown]
  - Crohn^s disease [Unknown]
  - Device issue [Unknown]
  - Nausea [Not Recovered/Not Resolved]

NARRATIVE: CASE EVENT DATE: 20230101
